FAERS Safety Report 9490912 (Version 1)
Quarter: 2013Q3

REPORT INFORMATION
  Report Type: Spontaneous
  Country: US (occurrence: US)
  Receive Date: 20130830
  Receipt Date: 20130830
  Transmission Date: 20140515
  Serious: No
  Sender: FDA-Public Use
  Company Number: US-PFIZER INC-2013246913

PATIENT
  Age: 86 Year
  Sex: Male

DRUGS (1)
  1. SUTENT [Suspect]
     Indication: MALIGNANT MELANOMA
     Dosage: 50 MG, 1X/DAY

REACTIONS (4)
  - Disease progression [Unknown]
  - Malignant melanoma [Unknown]
  - Drug intolerance [Unknown]
  - Off label use [Unknown]
